FAERS Safety Report 9174308 (Version 2)
Quarter: 2013Q1

REPORT INFORMATION
  Report Type: Spontaneous
  Country: PL (occurrence: PL)
  Receive Date: 20130320
  Receipt Date: 20130328
  Transmission Date: 20140127
  Serious: Yes (Hospitalization)
  Sender: FDA-Public Use
  Company Number: PL-PFIZER INC-2013084608

PATIENT
  Age: 25 Year
  Sex: Male

DRUGS (1)
  1. DALACIN C [Suspect]
     Dosage: 300 MG, UNK
     Route: 048

REACTIONS (3)
  - Erythema [Recovering/Resolving]
  - Skin discolouration [Recovering/Resolving]
  - Swelling [Recovering/Resolving]
